FAERS Safety Report 9341217 (Version 2)
Quarter: 2013Q2

REPORT INFORMATION
  Report Type: Report from Study
  Country: CA (occurrence: CA)
  Receive Date: 20130611
  Receipt Date: 20130625
  Transmission Date: 20140414
  Serious: Yes (Other)
  Sender: FDA-Public Use
  Company Number: CA-ROCHE-1232319

PATIENT
  Age: 75 Year
  Sex: Male
  Weight: 91 kg

DRUGS (9)
  1. RITUXAN [Suspect]
     Indication: PEMPHIGUS
     Dosage: PREVIOUS DOSE ON 19/DEC/2011
     Route: 042
     Dates: start: 20111205
  2. PREDNISONE [Suspect]
     Indication: CARDIAC FAILURE CONGESTIVE
     Route: 065
  3. PREDNISONE [Suspect]
     Indication: PULMONARY OEDEMA
  4. PREDNISONE [Suspect]
     Indication: BACK PAIN
  5. PREVACID [Concomitant]
     Route: 065
  6. AMLODIPINE [Concomitant]
     Route: 065
  7. DIPHENHYDRAMINE HCL [Concomitant]
     Route: 048
     Dates: start: 20111205
  8. ACETAMINOPHEN [Concomitant]
     Route: 048
     Dates: start: 20111205
  9. METHYLPREDNISOLONE [Concomitant]
     Route: 042
     Dates: start: 20111205

REACTIONS (4)
  - Cardiac failure congestive [Unknown]
  - Pulmonary oedema [Unknown]
  - Back pain [Recovering/Resolving]
  - Pemphigus [Not Recovered/Not Resolved]
